FAERS Safety Report 9315735 (Version 2)
Quarter: 2013Q2

REPORT INFORMATION
  Report Type: Spontaneous
  Country: ES (occurrence: ES)
  Receive Date: 20130529
  Receipt Date: 20130611
  Transmission Date: 20140414
  Serious: Yes (Death, Other)
  Sender: FDA-Public Use
  Company Number: ES-SPECTRUM PHARMACEUTICALS, INC.-13-Z-ES-00168

PATIENT
  Sex: 0

DRUGS (6)
  1. ZEVALIN [Suspect]
     Indication: NON-HODGKIN^S LYMPHOMA UNSPECIFIED HISTOLOGY AGGRESSIVE
     Dosage: 0.4 MCI/KG, SINGLE
     Route: 042
     Dates: start: 200509, end: 201202
  2. ZEVALIN [Suspect]
     Indication: MANTLE CELL LYMPHOMA
  3. ZEVALIN [Suspect]
     Indication: DIFFUSE LARGE B-CELL LYMPHOMA
  4. RITUXIMAB [Suspect]
     Indication: NON-HODGKIN^S LYMPHOMA UNSPECIFIED HISTOLOGY AGGRESSIVE
     Dosage: 250 MG/M2, SINGLE
     Dates: start: 200509, end: 201202
  5. RITUXIMAB [Suspect]
     Indication: MANTLE CELL LYMPHOMA
     Dosage: 250 MG/M2, SINGLE
     Dates: start: 200509, end: 201202
  6. RITUXIMAB [Suspect]
     Indication: DIFFUSE LARGE B-CELL LYMPHOMA

REACTIONS (4)
  - Death [Fatal]
  - Disease progression [Fatal]
  - Thrombocytopenia [Recovered/Resolved]
  - Neutropenia [Recovered/Resolved]
